FAERS Safety Report 4279179-0 (Version None)
Quarter: 2004Q1

REPORT INFORMATION
  Report Type: 
  Country: None (occurrence: None)
  Receive Date: 20040122
  Receipt Date: 20040109
  Transmission Date: 20041129
  Serious: Yes (Hospitalization)
  Sender: FDA-Public Use
  Company Number: 2004002164

PATIENT
  Age: 20 Year
  Sex: Male

DRUGS (3)
  1. ZITHROMAX [Suspect]
     Indication: ILL-DEFINED DISORDER
     Dosage: 200 MG, ORAL
     Route: 048
     Dates: start: 20040106
  2. LOXOPROFEN SODIUM (LOXOPROFEN SODIUM) [Concomitant]
  3. REBAMIPIDE (REBAMIPIDE) [Concomitant]

REACTIONS (3)
  - HYPERHIDROSIS [None]
  - PYREXIA [None]
  - VOMITING [None]
